FAERS Safety Report 10945535 (Version 3)
Quarter: 2015Q3

REPORT INFORMATION
  Report Type: Report from Study
  Country: US (occurrence: US)
  Receive Date: 20150323
  Receipt Date: 20150708
  Transmission Date: 20151125
  Serious: Yes (Other)
  Sender: FDA-Public Use
  Company Number: US-SANOFI-AVENTIS-2013SA062253

PATIENT
  Age: 55 Year
  Sex: Female

DRUGS (2)
  1. REBIF [Concomitant]
     Active Substance: INTERFERON BETA-1A
     Indication: MULTIPLE SCLEROSIS
     Dates: start: 20130701, end: 20150101
  2. AUBAGIO [Suspect]
     Active Substance: TERIFLUNOMIDE
     Indication: MULTIPLE SCLEROSIS
     Route: 048
     Dates: start: 20130524, end: 20130609

REACTIONS (6)
  - Stress [Unknown]
  - Abnormal behaviour [Unknown]
  - Mammogram abnormal [Unknown]
  - Sleep disorder [Unknown]
  - Heart rate increased [Unknown]
  - Myocardial infarction [Recovered/Resolved]
